FAERS Safety Report 25645545 (Version 1)
Quarter: 2025Q3

REPORT INFORMATION
  Report Type: Spontaneous
  Country: US (occurrence: None)
  Receive Date: 20250804
  Receipt Date: 20250804
  Transmission Date: 20251021
  Serious: Yes (Hospitalization)
  Sender: FDA-CTU
  Company Number: None

PATIENT
  Age: 71 Year
  Sex: Female
  Weight: 107.55 kg

DRUGS (8)
  1. IMATINIB [Suspect]
     Active Substance: IMATINIB
     Indication: Gastrointestinal stromal tumour
     Dosage: 400 MG DAILY ORAL ?
     Route: 048
     Dates: start: 20210126
  2. Metropolol ER Succinate [Concomitant]
  3. SPIRONOLACTONE [Concomitant]
     Active Substance: SPIRONOLACTONE
  4. FLUTICASONE [Concomitant]
     Active Substance: FLUTICASONE
  5. Centrum Multivitamin [Concomitant]
  6. Vitamin B-12 Tablet [Concomitant]
  7. HYOSCYAMINE SULFATE [Concomitant]
     Active Substance: HYOSCYAMINE SULFATE
  8. DIETARY SUPPLEMENT [Concomitant]
     Active Substance: DIETARY SUPPLEMENT

REACTIONS (2)
  - Nephrolithiasis [None]
  - Intentional dose omission [None]

NARRATIVE: CASE EVENT DATE: 20250724
